FAERS Safety Report 25250407 (Version 1)
Quarter: 2025Q2

REPORT INFORMATION
  Report Type: Spontaneous
  Country: FR (occurrence: FR)
  Receive Date: 20250429
  Receipt Date: 20250429
  Transmission Date: 20250717
  Serious: Yes (Hospitalization)
  Sender: EMD SERONO INC
  Company Number: None

PATIENT
  Sex: Male
  Weight: 3 kg

DRUGS (4)
  1. LEVOTHYROXINE SODIUM [Suspect]
     Active Substance: LEVOTHYROXINE SODIUM
     Indication: Bipolar disorder
     Dosage: PRODUCT TAKEN BY PATIENT MOTHER IN TABLET FORM
     Dates: start: 20240627, end: 20250328
  2. LAMOTRIGINE [Suspect]
     Active Substance: LAMOTRIGINE
     Indication: Bipolar disorder
     Dosage: PRODUCT TAKEN BY PATIENT MOTHER
     Dates: start: 20240627, end: 20250328
  3. CITALOPRAM HYDROCHLORIDE [Suspect]
     Active Substance: CITALOPRAM HYDROCHLORIDE
     Indication: Bipolar disorder
     Dosage: PRODUCT TAKEN BY PATIENT MOTHER
     Dates: start: 20240627, end: 20250328
  4. OXAZEPAM [Suspect]
     Active Substance: OXAZEPAM
     Indication: Bipolar disorder
     Dosage: PRODUCT TAKEN BY PATIENT MOTHER
     Dates: start: 20240627, end: 20250328

REACTIONS (3)
  - Tachypnoea [Not Recovered/Not Resolved]
  - Agitation [Not Recovered/Not Resolved]
  - Maternal exposure during pregnancy [Recovered/Resolved]

NARRATIVE: CASE EVENT DATE: 20250329
